FAERS Safety Report 24569944 (Version 1)
Quarter: 2024Q4

REPORT INFORMATION
  Report Type: Spontaneous
  Country: US (occurrence: None)
  Receive Date: 20241031
  Receipt Date: 20241031
  Transmission Date: 20250114
  Serious: Yes (Death)
  Sender: Public
  Company Number: None

PATIENT
  Age: 72 Year
  Sex: Male
  Weight: 85.32 kg

DRUGS (16)
  1. POMALYST [Suspect]
     Active Substance: POMALIDOMIDE
     Indication: Plasma cell myeloma
     Dosage: 1 TOT - TOTAL DAILY ORAL
     Route: 048
     Dates: start: 20220629, end: 20241029
  2. Ativan 1 mg tablet [Concomitant]
  3. ACYCLOVIR [Concomitant]
     Active Substance: ACYCLOVIR
  4. Humalog KwikPen U-200 Insulin 200 unit/mL (3 mL) subcutaneous [Concomitant]
  5. Afrin (oxymetazoline) 0.05 % nasal spray [Concomitant]
  6. Zyprexa 2.5 mg tablet [Concomitant]
  7. DEXAMETHASONE [Concomitant]
     Active Substance: DEXAMETHASONE
  8. Percocet 10 mg-325 mg tablet [Concomitant]
  9. Xpovio 60 mg/week (60 mg x 1) tablet [Concomitant]
  10. Ambien CR 12.5 mg tablet,extended release [Concomitant]
  11. Carafate 1 gram tablet [Concomitant]
  12. pantoprazole 40 mg tablet,delayed release [Concomitant]
  13. Reglan 10 mg tablet [Concomitant]
  14. JADENU [Concomitant]
     Active Substance: DEFERASIROX
  15. AMLODIPINE [Concomitant]
     Active Substance: AMLODIPINE BESYLATE
  16. Claritin 10 mg tablet [Concomitant]

REACTIONS (1)
  - Death [None]

NARRATIVE: CASE EVENT DATE: 20241029
